FAERS Safety Report 9568699 (Version 2)
Quarter: 2013Q3

REPORT INFORMATION
  Report Type: Spontaneous
  Country: US (occurrence: US)
  Receive Date: 20130930
  Receipt Date: 20130930
  Transmission Date: 20140515
  Serious: No
  Sender: FDA-Public Use
  Company Number: US-AMGEN-USASP2013038914

PATIENT
  Age: 58 Year
  Sex: Female
  Weight: 81.63 kg

DRUGS (6)
  1. ENBREL [Suspect]
     Indication: RHEUMATOID ARTHRITIS
     Dosage: 50 MG, WEEKLY
     Route: 058
     Dates: start: 20130301
  2. ENBREL [Suspect]
     Indication: ANKYLOSING SPONDYLITIS
  3. MAXALT [Concomitant]
     Dosage: 5 MG, UNK
  4. CATAFLAM                           /00372302/ [Concomitant]
     Dosage: 50 MG, UNK
  5. VITAMIN D                          /00107901/ [Concomitant]
     Dosage: 1000 UNIT, UNK
  6. ZIAC                               /01166101/ [Concomitant]
     Dosage: 10/6.25

REACTIONS (12)
  - Fatigue [Not Recovered/Not Resolved]
  - Pain [Not Recovered/Not Resolved]
  - Back pain [Unknown]
  - Muscular weakness [Unknown]
  - Musculoskeletal pain [Unknown]
  - Neck pain [Unknown]
  - Arthralgia [Unknown]
  - Injection site pruritus [Recovered/Resolved]
  - Injection site erythema [Recovered/Resolved]
  - Injection site swelling [Recovered/Resolved]
  - Injection site warmth [Recovered/Resolved]
  - Injection site pain [Not Recovered/Not Resolved]
